FAERS Safety Report 6252730-7 (Version None)
Quarter: 2009Q3

REPORT INFORMATION
  Report Type: 
  Country: None (occurrence: None)
  Receive Date: 20090701
  Receipt Date: 20090622
  Transmission Date: 20100115
  Serious: Yes (Hospitalization, Other)
  Sender: FDA-Public Use
  Company Number: ES-ASTRAZENECA-2009SE03603

PATIENT
  Age: 46 Year
  Sex: Male
  Weight: 80 kg

DRUGS (10)
  1. LIDOCAINE [Suspect]
     Indication: ANAESTHESIA
     Dosage: 2 CC,3 PUFFS
     Route: 060
  2. LIDOCAINE [Interacting]
     Route: 039
  3. TRUVADA [Interacting]
     Indication: ANTIRETROVIRAL THERAPY
     Dosage: 200/245 MG DAILY
  4. COTRIM [Concomitant]
     Indication: PROPHYLAXIS
  5. SIMVASTATIN [Concomitant]
  6. HEPARIN [Concomitant]
     Dosage: FROM 10 DAYS BEFORE THE DAY OF INTERVENTION
  7. DIAZEPAM [Concomitant]
  8. VIRAMUNE [Concomitant]
     Indication: ANTIRETROVIRAL THERAPY
  9. MIDAZOLAM HCL [Concomitant]
     Indication: PREMEDICATION
     Route: 042
  10. OXIMETAZOLINE [Concomitant]
     Indication: PREMEDICATION
     Route: 042

REACTIONS (3)
  - ACUTE PULMONARY OEDEMA [None]
  - DRUG INTERACTION [None]
  - GRAND MAL CONVULSION [None]
